FAERS Safety Report 4633824-6 (Version None)
Quarter: 2005Q2

REPORT INFORMATION
  Report Type: 
  Country: None (occurrence: None)
  Receive Date: 20050413
  Receipt Date: 20050408
  Transmission Date: 20051028
  Serious: Yes (Hospitalization)
  Sender: FDA-Public Use
  Company Number: 200510945EU

PATIENT
  Age: 82 Year
  Sex: Male

DRUGS (4)
  1. TAXOTERE [Suspect]
     Indication: NEOPLASM MALIGNANT
     Route: 042
     Dates: start: 20050331, end: 20050331
  2. PREDNISONE [Concomitant]
     Route: 048
     Dates: start: 20050331, end: 20050331
  3. GRANISETRON [Concomitant]
     Route: 042
     Dates: start: 20050331, end: 20050331
  4. DEXAMETHASONE [Concomitant]
     Route: 042
     Dates: start: 20050331, end: 20050331

REACTIONS (3)
  - ABDOMINAL PAIN [None]
  - CHEST PAIN [None]
  - TREMOR [None]
